FAERS Safety Report 13807475 (Version 1)
Quarter: 2017Q3

REPORT INFORMATION
  Report Type: Spontaneous
  Country: DE (occurrence: DE)
  Receive Date: 20170728
  Receipt Date: 20170728
  Transmission Date: 20171127
  Serious: Yes (Other)
  Sender: FDA-Public Use
  Company Number: DE-ROCHE-1921671

PATIENT
  Age: 10 Month
  Sex: Male

DRUGS (2)
  1. ACTILYSE [Suspect]
     Active Substance: ALTEPLASE
     Indication: THROMBOSIS
     Dosage: DOSE: 0.1 MG/KG BOLUS FOLLOWED BY A CONTINUOUS DAILY INFUSION OF 1.7 MG/KG BW. (0.07 MG/KG PER HOUR)
     Route: 042
  2. HEPARIN SODIUM. [Concomitant]
     Active Substance: HEPARIN SODIUM
     Route: 065

REACTIONS (1)
  - Pericardial haemorrhage [Unknown]
